FAERS Safety Report 15844679 (Version 1)
Quarter: 2019Q1

REPORT INFORMATION
  Report Type: Spontaneous
  Country: IN (occurrence: IN)
  Receive Date: 20190118
  Receipt Date: 20190118
  Transmission Date: 20190417
  Serious: Yes (Other)
  Sender: FDA-Public Use
  Company Number: IN-PFIZER INC-2019014574

PATIENT
  Age: 60 Year
  Sex: Female

DRUGS (3)
  1. CEFOPERAZONE SODIUM [Suspect]
     Active Substance: CEFOPERAZONE SODIUM
     Indication: PYOMETRA
     Dosage: UNK
  2. SULBACTAM [Suspect]
     Active Substance: SULBACTAM
     Indication: PYOMETRA
     Dosage: UNK
  3. AMIKACIN. [Suspect]
     Active Substance: AMIKACIN
     Indication: PYOMETRA
     Dosage: UNK

REACTIONS (2)
  - Acinetobacter infection [Recovering/Resolving]
  - Perforation [Recovering/Resolving]
